FAERS Safety Report 17395127 (Version 1)
Quarter: 2020Q1

REPORT INFORMATION
  Report Type: Spontaneous
  Country: US (occurrence: US)
  Receive Date: 20200123
  Receipt Date: 20200123
  Transmission Date: 20200409
  Serious: No
  Sender: FDA-Public Use
  Company Number: None

PATIENT
  Age: 70 Year
  Sex: Male
  Weight: 90.26 kg

DRUGS (8)
  1. LISINOPRIL. [Concomitant]
     Active Substance: LISINOPRIL
  2. OZEMPIC [Suspect]
     Active Substance: SEMAGLUTIDE
     Indication: DIABETES MELLITUS
     Dosage: ?          QUANTITY:1 DF DOSAGE FORM;?
     Route: 058
     Dates: start: 20190911, end: 20190918
  3. AMLODIPINE [Concomitant]
     Active Substance: AMLODIPINE BESYLATE
  4. ASA 81 [Concomitant]
     Active Substance: ASPIRIN
  5. BACLOFEN. [Concomitant]
     Active Substance: BACLOFEN
  6. OMEPRAZOLE. [Concomitant]
     Active Substance: OMEPRAZOLE
  7. ROSUVASTATIN. [Concomitant]
     Active Substance: ROSUVASTATIN
  8. SITAGLIPTIN-METFORMIN [Concomitant]
     Active Substance: METFORMIN\SITAGLIPTIN

REACTIONS (1)
  - Visual impairment [None]

NARRATIVE: CASE EVENT DATE: 20191209
